FAERS Safety Report 12590772 (Version 1)
Quarter: 2016Q3

REPORT INFORMATION
  Report Type: Spontaneous
  Country: DE (occurrence: DE)
  Receive Date: 20160726
  Receipt Date: 20160726
  Transmission Date: 20161109
  Serious: Yes (Death, Other)
  Sender: FDA-Public Use
  Company Number: DE-CIPLA LTD.-2016DE10001

PATIENT

DRUGS (20)
  1. DEXAMETHASONE. [Concomitant]
     Active Substance: DEXAMETHASONE
     Indication: NAUSEA
     Dosage: 8 MG/?
     Route: 042
     Dates: start: 20160218, end: 2016
  2. CARBOPLATIN. [Suspect]
     Active Substance: CARBOPLATIN
     Indication: NON-SMALL CELL LUNG CANCER
     Dosage: 598.55 MG, EVERY 3 WEEKS
     Route: 042
     Dates: start: 20160218, end: 20160218
  3. NOVALGIN [Concomitant]
     Active Substance: METAMIZOLE SODIUM
     Indication: PAIN
     Dosage: 4 * 500 MG / TG, UNK
     Route: 048
     Dates: start: 20160426, end: 2016
  4. IRBESARTAN / HCT [Concomitant]
     Indication: HYPERTENSION
     Dosage: 1 DF/ TG, UNK
     Route: 048
     Dates: end: 2016
  5. POTASSIUM VERLA [Concomitant]
     Indication: HYPOKALAEMIA
     Dosage: 20 MMOL/ TG
     Route: 048
     Dates: start: 20160307, end: 2016
  6. TAZOBAC [Concomitant]
     Active Substance: PIPERACILLIN SODIUM\TAZOBACTAM SODIUM
     Indication: INFECTION
     Dosage: 3 X 4.5 L/TG
     Route: 042
     Dates: start: 20160501, end: 201605
  7. LONQUEX [Suspect]
     Active Substance: LIPEGFILGRASTIM
     Indication: NEUTROPENIA
     Dosage: UNK
     Route: 065
     Dates: start: 20160225, end: 20160424
  8. TARGIN [Concomitant]
     Active Substance: NALOXONE HYDROCHLORIDE\OXYCODONE HYDROCHLORIDE
     Indication: PAIN
     Dosage: 2 * 1 DF/ TG
     Route: 048
     Dates: start: 20160426, end: 2016
  9. ONDANSETRON [Concomitant]
     Active Substance: ONDANSETRON
     Indication: NAUSEA
     Dosage: 8 MG/?
     Route: 042
     Dates: start: 20160218, end: 2016
  10. ZOPICLONE [Concomitant]
     Active Substance: ZOPICLONE
     Indication: SLEEP DISORDER
     Dosage: 3.75 MG, PRN
     Route: 048
     Dates: start: 20160310, end: 2016
  11. ETOPOSIDE. [Suspect]
     Active Substance: ETOPOSIDE
     Indication: NON-SMALL CELL LUNG CANCER
     Dosage: 3 * 236.4 MG, EVERY 3 WEEKS
     Route: 042
     Dates: start: 20160218, end: 20160422
  12. IRBESARTAN. [Concomitant]
     Active Substance: IRBESARTAN
     Indication: HYPERTENSION
     Dosage: 150MG/ TG
     Route: 048
     Dates: end: 2016
  13. CARBOPLATIN. [Suspect]
     Active Substance: CARBOPLATIN
     Dosage: 622.25 MG, UNK, EVERY 3 WEEKS
     Route: 042
     Dates: start: 20160309, end: 20160420
  14. DEXAMETHASONE. [Concomitant]
     Active Substance: DEXAMETHASONE
     Dosage: 8 MG/?
     Route: 048
     Dates: start: 20160221, end: 2016
  15. METFORMIN [Concomitant]
     Active Substance: METFORMIN HYDROCHLORIDE
     Indication: DIABETES MELLITUS
     Dosage: 2 X 850 MG/ TG
     Route: 048
     Dates: end: 2016
  16. ASPIRIN. [Concomitant]
     Active Substance: ASPIRIN
     Indication: PROPHYLAXIS
     Dosage: 100 MG/ TG.
     Route: 048
     Dates: end: 2016
  17. ALLOPURINOL. [Concomitant]
     Active Substance: ALLOPURINOL
     Indication: PROPHYLAXIS
     Dosage: 300 MG/TG
     Route: 048
     Dates: start: 20160216, end: 2016
  18. VINCRISTINE [Concomitant]
     Active Substance: VINCRISTINE
     Indication: NON-SMALL CELL LUNG CANCER
     Dosage: 1 MG/?
     Route: 042
     Dates: start: 20160216, end: 20160216
  19. BISOPROLOL [Concomitant]
     Active Substance: BISOPROLOL
     Indication: HYPERTENSION
     Dosage: 5 MG/ TG, UNK
     Route: 048
     Dates: end: 2016
  20. MCP [Concomitant]
     Active Substance: METOCLOPRAMIDE HYDROCHLORIDE
     Indication: NAUSEA
     Dosage: 10 MG AS NEEDED, UNK
     Route: 048
     Dates: start: 20160309, end: 2016

REACTIONS (4)
  - Neutropenia [Fatal]
  - Leukopenia [Fatal]
  - Non-small cell lung cancer [Fatal]
  - Thrombocytopenia [Not Recovered/Not Resolved]

NARRATIVE: CASE EVENT DATE: 20160426
